FAERS Safety Report 15781981 (Version 5)
Quarter: 2021Q3

REPORT INFORMATION
  Report Type: Spontaneous
  Country: US (occurrence: US)
  Receive Date: 20190102
  Receipt Date: 20210719
  Transmission Date: 20211014
  Serious: No
  Sender: FDA-Public Use
  Company Number: US-PFIZER INC-2018537090

PATIENT
  Age: 45 Year
  Sex: Female
  Weight: 90.26 kg

DRUGS (3)
  1. ZYRTEC [Concomitant]
     Active Substance: CETIRIZINE HYDROCHLORIDE
     Indication: EAR DISCOMFORT
     Dosage: 10 MG, AS NEEDED (ONCE DAILY AS NEEDED)
  2. SERTRALINE HCL [Suspect]
     Active Substance: SERTRALINE HYDROCHLORIDE
     Indication: PANIC ATTACK
     Dosage: 100 MG, TWICE DAILY
     Route: 048
     Dates: start: 201501, end: 201503
  3. SERTRALINE HCL [Suspect]
     Active Substance: SERTRALINE HYDROCHLORIDE
     Indication: ANXIETY

REACTIONS (4)
  - Dry mouth [Unknown]
  - Decreased appetite [Unknown]
  - Diarrhoea [Unknown]
  - Drug ineffective [Unknown]
